FAERS Safety Report 9479300 (Version 1)
Quarter: 2013Q3

REPORT INFORMATION
  Report Type: Spontaneous
  Country: FR (occurrence: FR)
  Receive Date: 20130827
  Receipt Date: 20130827
  Transmission Date: 20140515
  Serious: Yes (Other)
  Sender: FDA-Public Use
  Company Number: FR-WATSON-2013-14960

PATIENT
  Age: 16 Year
  Sex: Female

DRUGS (1)
  1. BACLOFEN (UNKNOWN) [Suspect]
     Indication: SUICIDE ATTEMPT
     Dosage: 40 MG, UNK
     Route: 048

REACTIONS (4)
  - Vomiting [Unknown]
  - Diarrhoea [Unknown]
  - Salivary hypersecretion [Unknown]
  - Nausea [Unknown]
